FAERS Safety Report 7393139-2 (Version None)
Quarter: 2011Q2

REPORT INFORMATION
  Report Type: 
  Country: None (occurrence: None)
  Receive Date: 20110404
  Receipt Date: 20110330
  Transmission Date: 20111010
  Serious: Yes (Life-Threatening)
  Sender: FDA-Public Use
  Company Number: PHHY2010US30278

PATIENT
  Sex: Female

DRUGS (1)
  1. RECLAST [Suspect]
     Dosage: 5 MG, YEARLY
     Route: 042

REACTIONS (11)
  - PAIN IN EXTREMITY [None]
  - DYSPNOEA [None]
  - FEELING ABNORMAL [None]
  - CRYING [None]
  - COUGH [None]
  - PYREXIA [None]
  - SCREAMING [None]
  - ABASIA [None]
  - LIMB DISCOMFORT [None]
  - NASOPHARYNGITIS [None]
  - PAIN [None]
